FAERS Safety Report 12543478 (Version 2)
Quarter: 2016Q3

REPORT INFORMATION
  Report Type: Spontaneous
  Country: US (occurrence: US)
  Receive Date: 20160711
  Receipt Date: 20160812
  Transmission Date: 20161109
  Serious: Yes (Other)
  Sender: FDA-Public Use
  Company Number: US-ALEXION PHARMACEUTICALS INC-A201604961

PATIENT
  Age: 19 Year
  Sex: Female

DRUGS (1)
  1. SOLIRIS [Suspect]
     Active Substance: ECULIZUMAB
     Indication: PAROXYSMAL NOCTURNAL HAEMOGLOBINURIA
     Dosage: 900 MG, Q2W
     Route: 042
     Dates: start: 20160519

REACTIONS (5)
  - Pain [Not Recovered/Not Resolved]
  - Anaemia [Unknown]
  - Exposure during pregnancy [Recovered/Resolved]
  - Aplastic anaemia [Unknown]
  - Haemoglobinuria [Unknown]

NARRATIVE: CASE EVENT DATE: 20160803
